FAERS Safety Report 7748176-2 (Version None)
Quarter: 2011Q3

REPORT INFORMATION
  Report Type: 
  Country: None (occurrence: None)
  Receive Date: 20110913
  Receipt Date: 20110907
  Transmission Date: 20111222
  Serious: Yes (Other)
  Sender: FDA-Public Use
  Company Number: US-BAXTER-2011BH028836

PATIENT
  Sex: Female

DRUGS (1)
  1. GAMMAGARD LIQUID [Suspect]
     Indication: IMMUNODEFICIENCY COMMON VARIABLE
     Route: 042

REACTIONS (8)
  - LUNG NEOPLASM [None]
  - CHILLS [None]
  - PYREXIA [None]
  - HEPATOMEGALY [None]
  - ABDOMINAL PAIN [None]
  - INFLUENZA LIKE ILLNESS [None]
  - CHOLELITHIASIS [None]
  - SPLENOMEGALY [None]
